FAERS Safety Report 8144682-X (Version None)
Quarter: 2012Q1

REPORT INFORMATION
  Report Type: 
  Country: None (occurrence: None)
  Receive Date: 20120217
  Receipt Date: 20120213
  Transmission Date: 20120608
  Serious: Yes (Death)
  Sender: FDA-Public Use
  Company Number: JP-EISAI INC-E2090-01975-SPO-JP

PATIENT
  Age: 67 Year
  Sex: Female

DRUGS (11)
  1. LIPITOR [Concomitant]
     Dosage: UNKNOWN
     Route: 048
     Dates: start: 20110825, end: 20110907
  2. GASTOR [Concomitant]
     Dosage: UNKNOWN
     Route: 041
     Dates: end: 20110910
  3. FLORINEF [Concomitant]
     Dosage: UNKNOWN
     Route: 048
     Dates: start: 20110825, end: 20110907
  4. HIRLOK [Concomitant]
     Dosage: UNKNOWN
     Route: 041
     Dates: start: 20110909, end: 20110919
  5. CERONEED [Concomitant]
     Dosage: UNKNOWN
     Route: 041
     Dates: start: 20110905, end: 20110912
  6. RADICUT [Concomitant]
     Dosage: UNKNOWN
     Route: 041
     Dates: end: 20110903
  7. PROPOFOL [Concomitant]
     Dosage: UNKNOWN
     Route: 041
     Dates: end: 20110831
  8. SUBACILLIN [Concomitant]
     Dosage: UNKNOWN
     Route: 041
     Dates: start: 20110824, end: 20110904
  9. ERIL [Concomitant]
     Dosage: UNKNOWN
     Route: 041
     Dates: end: 20110904
  10. ZONISAMIDE [Suspect]
     Dosage: UNKNOWN
     Route: 048
     Dates: start: 20110825, end: 20110907
  11. EPADEL [Concomitant]
     Dosage: UNKNOWN
     Route: 048
     Dates: start: 20110825, end: 20110907

REACTIONS (1)
  - TOXIC EPIDERMAL NECROLYSIS [None]
